FAERS Safety Report 10447056 (Version 2)
Quarter: 2014Q4

REPORT INFORMATION
  Report Type: Spontaneous
  Country: CH (occurrence: None)
  Receive Date: 20140909
  Receipt Date: 20141020
  Transmission Date: 20150528
  Serious: Yes (Hospitalization)
  Sender: FDA-Public Use
  Company Number: 20140585

PATIENT
  Age: 92 Year
  Sex: Female

DRUGS (9)
  1. ACENOCOUMAROL [Concomitant]
     Active Substance: ACENOCOUMAROL
  2. METOPROLOL [Concomitant]
     Active Substance: METOPROLOL
  3. LOSARTAN [Concomitant]
     Active Substance: LOSARTAN
  4. ERGOCALCIFEROL (VITAMIN D) [Concomitant]
  5. PANTOPRAZOLE [Concomitant]
     Active Substance: PANTOPRAZOLE SODIUM
  6. FERINJECT [Suspect]
     Active Substance: FERRIC CARBOXYMALTOSE
     Indication: IRON DEFICIENCY ANAEMIA
     Dosage: 1000 MG, 1 IN 1 TOTAL, INTRAVENEOUS DRIP
     Route: 041
     Dates: start: 20140731
  7. FOSINOPRIL [Concomitant]
     Active Substance: FOSINOPRIL
  8. HYDROXOCORBALAMIN [Concomitant]
  9. INHIBIN (THIAMINE HYDORCHLORIDE) [Concomitant]

REACTIONS (8)
  - Blood alkaline phosphatase increased [None]
  - Tachycardia [None]
  - Cardiac failure [None]
  - Gamma-glutamyltransferase increased [None]
  - Atrial fibrillation [None]
  - Fluid overload [None]
  - Alanine aminotransferase increased [None]
  - Hepatitis [None]

NARRATIVE: CASE EVENT DATE: 20140731
